FAERS Safety Report 21413231 (Version 1)
Quarter: 2022Q4

REPORT INFORMATION
  Report Type: Report from Study
  Country: US (occurrence: US)
  Receive Date: 20221006
  Receipt Date: 20221006
  Transmission Date: 20230113
  Serious: Yes (Hospitalization, Other)
  Sender: FDA-Public Use
  Company Number: US-ABBVIE-4138281

PATIENT
  Age: 53 Year
  Sex: Female

DRUGS (1)
  1. HUMIRA [Suspect]
     Active Substance: ADALIMUMAB
     Indication: Rheumatoid arthritis
     Dosage: CITRATE FREE
     Route: 058
     Dates: start: 20220602, end: 2022

REACTIONS (8)
  - SARS-CoV-2 test positive [Recovering/Resolving]
  - Gait disturbance [Unknown]
  - Umbilical hernia [Unknown]
  - Abdominal pain [Recovering/Resolving]
  - Grip strength decreased [Unknown]
  - Appendicectomy [Unknown]
  - Balance disorder [Unknown]
  - Lethargy [Unknown]

NARRATIVE: CASE EVENT DATE: 20220801
